FAERS Safety Report 6094525-3 (Version None)
Quarter: 2009Q1

REPORT INFORMATION
  Report Type: 
  Country: None (occurrence: None)
  Receive Date: 20090226
  Receipt Date: 20090218
  Transmission Date: 20090719
  Serious: Yes (Hospitalization)
  Sender: FDA-Public Use
  Company Number: RO-B.I. PHARMACEUTICALS,INC./RIDGEFIELD-2009-AP-00035AP

PATIENT
  Age: 61 Year
  Sex: Female

DRUGS (1)
  1. SIFROL [Suspect]
     Indication: PARKINSON'S DISEASE
     Dosage: 2.1MG
     Route: 048
     Dates: start: 20060101, end: 20080801

REACTIONS (2)
  - ALANINE AMINOTRANSFERASE INCREASED [None]
  - ASPARTATE AMINOTRANSFERASE INCREASED [None]
